FAERS Safety Report 21756804 (Version 2)
Quarter: 2023Q1

REPORT INFORMATION
  Report Type: Spontaneous
  Country: US (occurrence: None)
  Receive Date: 20221220
  Receipt Date: 20230201
  Transmission Date: 20230417
  Serious: Yes (Hospitalization, Other)
  Sender: FDA-Public Use
  Company Number: 2022A403610

PATIENT
  Age: 66 Year
  Sex: Female
  Weight: 82.6 kg

DRUGS (1)
  1. EVUSHELD [Suspect]
     Active Substance: CILGAVIMAB\TIXAGEVIMAB
     Indication: Transplant
     Dosage: UNKNOWN
     Route: 030
     Dates: start: 202210

REACTIONS (2)
  - Complications of transplanted pancreas [Not Recovered/Not Resolved]
  - Blood glucose increased [Not Recovered/Not Resolved]

NARRATIVE: CASE EVENT DATE: 20220101
